FAERS Safety Report 16763291 (Version 3)
Quarter: 2019Q3

REPORT INFORMATION
  Report Type: Report from Study
  Country: US (occurrence: US)
  Receive Date: 20190902
  Receipt Date: 20190930
  Transmission Date: 20191005
  Serious: Yes (Other)
  Sender: FDA-Public Use
  Company Number: PHEH2019US036035

PATIENT
  Age: 47 Year
  Sex: Female

DRUGS (2)
  1. COSENTYX [Suspect]
     Active Substance: SECUKINUMAB
     Indication: PSORIATIC ARTHROPATHY
  2. COSENTYX [Suspect]
     Active Substance: SECUKINUMAB
     Indication: ANKYLOSING SPONDYLITIS
     Dosage: 150 MG, QW
     Route: 065

REACTIONS (9)
  - Perforated ulcer [Unknown]
  - Throat tightness [Unknown]
  - Nausea [Unknown]
  - Diarrhoea [Unknown]
  - Feeling abnormal [Unknown]
  - Asthenia [Unknown]
  - Macule [Unknown]
  - Headache [Unknown]
  - Fatigue [Unknown]
